FAERS Safety Report 6670165-X (Version None)
Quarter: 2010Q2

REPORT INFORMATION
  Report Type: 
  Country: None (occurrence: None)
  Receive Date: 20100405
  Receipt Date: 20100323
  Transmission Date: 20101027
  Serious: Yes (Other)
  Sender: FDA-Public Use
  Company Number: 1000012972

PATIENT
  Sex: Female

DRUGS (9)
  1. MEMANTINE HCL [Suspect]
     Indication: ABNORMAL BEHAVIOUR
     Dosage: 5 MG (1 MG, 5 IN 1 D), ORAL
     Route: 048
  2. MADOPAR [Concomitant]
  3. PROPRANOLOL [Concomitant]
  4. MIRTAZAPINE [Concomitant]
  5. PERINDOPRIL [Concomitant]
  6. FUROSEMIDE [Concomitant]
  7. LACTULOSE [Concomitant]
  8. IMPORTAL [Concomitant]
  9. RISPERDAL [Concomitant]

REACTIONS (4)
  - AGITATION [None]
  - APATHY [None]
  - INTENTIONAL SELF-INJURY [None]
  - OFF LABEL USE [None]
